FAERS Safety Report 8004050-8 (Version None)
Quarter: 2011Q4

REPORT INFORMATION
  Report Type: 
  Country: None (occurrence: None)
  Receive Date: 20111222
  Receipt Date: 20111214
  Transmission Date: 20120403
  Serious: Yes (Other)
  Sender: FDA-Public Use
  Company Number: US-ASTRAZENECA-2011SE62433

PATIENT
  Age: 64 Year
  Sex: Female
  Weight: 52.2 kg

DRUGS (8)
  1. SEROQUEL [Suspect]
     Indication: BIPOLAR DISORDER
     Route: 048
     Dates: start: 20060101
  2. KEPRA XR [Concomitant]
     Indication: CONVULSION
     Route: 048
     Dates: start: 20110801
  3. CALCIUM [Concomitant]
  4. LORAZEPAM [Concomitant]
     Indication: SLEEP DISORDER
     Route: 048
     Dates: start: 20060101
  5. MULTIPLE VITAMINS [Concomitant]
  6. SIMBASTATIN [Concomitant]
     Indication: BLOOD CHOLESTEROL ABNORMAL
     Route: 048
     Dates: start: 20060101
  7. SEROQUEL [Suspect]
     Indication: DEPRESSION
     Route: 048
     Dates: start: 20060101
  8. VITAMIN B-12 [Concomitant]

REACTIONS (8)
  - SOMNOLENCE [None]
  - CONVULSION [None]
  - BREAST CANCER STAGE IV [None]
  - DEPRESSION [None]
  - DRUG INEFFECTIVE [None]
  - BRAIN NEOPLASM [None]
  - NEOPLASM MALIGNANT [None]
  - METASTASES TO LIVER [None]
